FAERS Safety Report 4432629-9 (Version None)
Quarter: 2004Q3

REPORT INFORMATION
  Report Type: 
  Country: None (occurrence: None)
  Receive Date: 20040825
  Receipt Date: 20040701
  Transmission Date: 20050211
  Serious: Yes (Hospitalization, Other)
  Sender: FDA-Public Use
  Company Number: PHHO2004PE09414

PATIENT
  Age: 29 Year
  Sex: Male

DRUGS (5)
  1. GLEEVEC [Suspect]
     Indication: CHRONIC MYELOID LEUKAEMIA
     Dosage: 400 MG, QD
     Route: 048
     Dates: start: 20040212, end: 20040427
  2. GLEEVEC [Suspect]
     Dosage: 400 MG, QD
     Route: 048
     Dates: start: 20040519, end: 20040613
  3. GLEEVEC [Suspect]
     Dosage: NO MEDICATION
     Dates: start: 20040428, end: 20040518
  4. PREDNISONE [Suspect]
  5. CHLORPHENAMINE [Concomitant]

REACTIONS (20)
  - CELLULITIS [None]
  - CHALAZION [None]
  - DRUG INEFFECTIVE [None]
  - ECCHYMOSIS [None]
  - EPIDERMAL NECROSIS [None]
  - EYELID OEDEMA [None]
  - FEBRILE NEUTROPENIA [None]
  - FURUNCLE [None]
  - GINGIVAL BLEEDING [None]
  - HAEMATOTOXICITY [None]
  - NEUTROPENIA [None]
  - ORAL MUCOSAL PETECHIAE [None]
  - PAIN [None]
  - PANCYTOPENIA [None]
  - PETECHIAE [None]
  - RASH PAPULAR [None]
  - SKIN INFECTION [None]
  - STAPHYLOCOCCAL BACTERAEMIA [None]
  - STAPHYLOCOCCAL INFECTION [None]
  - THROMBOCYTOPENIA [None]
